FAERS Safety Report 14024039 (Version 1)
Quarter: 2017Q3

REPORT INFORMATION
  Report Type: Spontaneous
  Country: US (occurrence: US)
  Receive Date: 20170928
  Receipt Date: 20170928
  Transmission Date: 20171128
  Serious: No
  Sender: FDA-Public Use
  Company Number: US-SA-2016SA232605

PATIENT
  Age: 33 Year
  Sex: Female

DRUGS (9)
  1. AMPYRA [Suspect]
     Active Substance: DALFAMPRIDINE
     Indication: MULTIPLE SCLEROSIS
     Dosage: STRENGTH : 10 MG
     Route: 065
  2. VENLAFAXINE HYDROCHLORIDE. [Concomitant]
     Active Substance: VENLAFAXINE HYDROCHLORIDE
  3. COGENTIN [Concomitant]
     Active Substance: BENZTROPINE MESYLATE
  4. IMITREX [Concomitant]
     Active Substance: SUMATRIPTAN SUCCINATE
  5. AUBAGIO [Suspect]
     Active Substance: TERIFLUNOMIDE
     Route: 065
  6. TOPAMAX [Concomitant]
     Active Substance: TOPIRAMATE
  7. PRIMIDONE. [Concomitant]
     Active Substance: PRIMIDONE
  8. XANAX [Concomitant]
     Active Substance: ALPRAZOLAM
  9. ALEVE [Concomitant]
     Active Substance: NAPROXEN SODIUM

REACTIONS (1)
  - Alopecia [Unknown]
